FAERS Safety Report 14306945 (Version 1)
Quarter: 2017Q4

REPORT INFORMATION
  Report Type: Report from Study
  Country: US (occurrence: US)
  Receive Date: 20171220
  Receipt Date: 20171220
  Transmission Date: 20180321
  Serious: Yes (Death, Other)
  Sender: FDA-Public Use
  Company Number: US-ARIAD PHARMACEUTICALS, INC-2017US008277

PATIENT
  Age: 39 Year
  Sex: Male

DRUGS (1)
  1. PONATINIB [Suspect]
     Active Substance: PONATINIB
     Indication: ACUTE LYMPHOCYTIC LEUKAEMIA
     Dosage: 15 MG, BID
     Route: 048
     Dates: start: 20170118

REACTIONS (11)
  - Fatigue [Unknown]
  - Graft versus host disease in gastrointestinal tract [Unknown]
  - Wheezing [Unknown]
  - Hypomagnesaemia [Unknown]
  - Anaemia [Unknown]
  - Hypertension [Unknown]
  - Immunodeficiency [Unknown]
  - Liver disorder [Unknown]
  - Death [Fatal]
  - Hypogonadism [Unknown]
  - Neuralgia [Unknown]

NARRATIVE: CASE EVENT DATE: 20171206
